FAERS Safety Report 8157307-4 (Version None)
Quarter: 2012Q1

REPORT INFORMATION
  Report Type: 
  Country: None (occurrence: None)
  Receive Date: 20120103
  Receipt Date: 20110930
  Transmission Date: 20120608
  Serious: No
  Sender: FDA-Public Use
  Company Number: AE-2011-001931

PATIENT
  Age: 64 Year
  Sex: Female
  Weight: 90.7194 kg

DRUGS (14)
  1. FLECAINIDE ACETATE [Concomitant]
  2. PEGASYS [Concomitant]
  3. RIBASPHERE [Concomitant]
  4. LASIX (LASIX) [Concomitant]
  5. MULTIVITAMIN [Concomitant]
  6. ONDANSETRON [Concomitant]
  7. CATAPRES [Concomitant]
  8. POTASSIUM CHLORIDE [Concomitant]
  9. VITAMIN D [Concomitant]
  10. INCIVEK [Suspect]
     Dosage: 2250 MG (1125 MG, 2 IN 1 D) ,ORAL
     Route: 048
     Dates: start: 20110927
  11. LOTREL [Concomitant]
  12. SYNTHROID [Concomitant]
  13. PREMARIN (PREMARIN PLUS) [Concomitant]
  14. NEXIUM [Concomitant]

REACTIONS (2)
  - WEIGHT INCREASED [None]
  - CONSTIPATION [None]
